FAERS Safety Report 9884159 (Version 2)
Quarter: 2014Q1

REPORT INFORMATION
  Report Type: Spontaneous
  Country: US (occurrence: US)
  Receive Date: 20140210
  Receipt Date: 20140210
  Transmission Date: 20141002
  Serious: No
  Sender: FDA-Public Use
  Company Number: US-ALLERGAN-1315487US

PATIENT
  Age: 55 Year
  Sex: Female

DRUGS (4)
  1. BOTOX COSMETIC [Suspect]
     Indication: SKIN WRINKLING
     Dosage: 40 UNITS, SINGLE
     Route: 030
     Dates: start: 20130913, end: 20130913
  2. BOTOX COSMETIC [Suspect]
     Indication: SKIN WRINKLING
     Dosage: 32 UNITS, SINGLE
     Route: 030
     Dates: start: 20130903, end: 20130903
  3. BOTOX COSMETIC [Suspect]
     Dosage: 32 UNITS, SINGLE
     Route: 030
     Dates: start: 20130821, end: 20130821
  4. BOTOX COSMETIC [Suspect]
     Dosage: UNK
     Dates: start: 2008, end: 2008

REACTIONS (5)
  - Wrong technique in drug usage process [Unknown]
  - Wrong technique in drug usage process [Unknown]
  - Incorrect product storage [Unknown]
  - Drug ineffective [Unknown]
  - Injection site bruising [Unknown]
